FAERS Safety Report 7822113-4 (Version None)
Quarter: 2011Q4

REPORT INFORMATION
  Report Type: 
  Country: None (occurrence: None)
  Receive Date: 20111018
  Receipt Date: 20110510
  Transmission Date: 20120403
  Serious: No
  Sender: FDA-Public Use
  Company Number: US-ASTRAZENECA-2011SE13137

PATIENT
  Age: 51 Year
  Sex: Female

DRUGS (6)
  1. SYMBICORT [Suspect]
     Indication: ASTHMA
     Dosage: 160/4.5 TWO PUFFS BID
     Route: 055
     Dates: start: 20090923
  2. SYMBICORT [Suspect]
     Indication: CHRONIC OBSTRUCTIVE PULMONARY DISEASE
     Dosage: 160/4.5 TWO PUFFS BID
     Route: 055
     Dates: start: 20090923
  3. ALBUTEROL [Concomitant]
     Dosage: QID PRN
  4. IPRATROPIUM BROMIDE AND ALBUTEROL COBINATION [Concomitant]
     Indication: ASTHMA
     Dosage: AS REQUIRED
  5. ADVAIR DISKUS 100/50 [Concomitant]
  6. IPRATROPIUM BROMIDE AND ALBUTEROL COBINATION [Concomitant]
     Indication: CHRONIC OBSTRUCTIVE PULMONARY DISEASE
     Dosage: AS REQUIRED

REACTIONS (1)
  - DYSPNOEA [None]
